FAERS Safety Report 24080053 (Version 1)
Quarter: 2024Q3

REPORT INFORMATION
  Report Type: Spontaneous
  Country: US (occurrence: US)
  Receive Date: 20240711
  Receipt Date: 20240711
  Transmission Date: 20241017
  Serious: Yes (Life-Threatening, Hospitalization, Other)
  Sender: AMGEN
  Company Number: US-AMGEN-USASP2024133876

PATIENT
  Age: 67 Year
  Sex: Male

DRUGS (1)
  1. TEPROTUMUMAB [Suspect]
     Active Substance: TEPROTUMUMAB
     Indication: Endocrine ophthalmopathy
     Dosage: UNK (THREE DOSES COMPLETED)
     Route: 042

REACTIONS (5)
  - Hyperglycaemic hyperosmolar nonketotic syndrome [Unknown]
  - Type 2 diabetes mellitus [Unknown]
  - Exposure keratitis [Unknown]
  - Vomiting [Unknown]
  - Decreased appetite [Unknown]
